FAERS Safety Report 18622453 (Version 3)
Quarter: 2022Q1

REPORT INFORMATION
  Report Type: Spontaneous
  Country: PT (occurrence: PT)
  Receive Date: 20201216
  Receipt Date: 20220107
  Transmission Date: 20220423
  Serious: Yes (Hospitalization, Other)
  Sender: FDA-Public Use
  Company Number: PT-GLAXOSMITHKLINE-PT2020GSK235905

PATIENT
  Age: 65 Year
  Sex: Male

DRUGS (2)
  1. AMOXICILLIN\CLAVULANIC ACID [Suspect]
     Active Substance: AMOXICILLIN\CLAVULANIC ACID
     Indication: Tonsillitis
     Dosage: UNK
     Route: 065
  2. AMOXICILLIN\CLAVULANIC ACID [Suspect]
     Active Substance: AMOXICILLIN\CLAVULANIC ACID
     Dosage: 875 MG AMOXICILOIN WITH 125 CLAVULANIC ACID
     Route: 048

REACTIONS (18)
  - Hepatitis cholestatic [Recovered/Resolved]
  - Abdominal pain [Recovered/Resolved]
  - Choluria [Recovered/Resolved]
  - Faeces pale [Recovered/Resolved]
  - Jaundice [Recovered/Resolved]
  - Decreased appetite [Recovered/Resolved]
  - Pruritus [Recovered/Resolved]
  - Drug-induced liver injury [Recovered/Resolved]
  - Off label use [Unknown]
  - Hyperbilirubinaemia [Recovered/Resolved]
  - Cholestasis [Recovered/Resolved]
  - Hepatitis [Recovered/Resolved]
  - Hepatic cytolysis [Recovered/Resolved]
  - Hepatic enzyme increased [Recovered/Resolved]
  - Biliary tract disorder [Recovered/Resolved]
  - Pain [Recovered/Resolved]
  - Abdominal distension [Recovered/Resolved]
  - Decreased appetite [Recovered/Resolved]
